FAERS Safety Report 7007356-4 (Version None)
Quarter: 2010Q3

REPORT INFORMATION
  Report Type: 
  Country: None (occurrence: None)
  Receive Date: 20100922
  Receipt Date: 20100920
  Transmission Date: 20110219
  Serious: Yes (Hospitalization)
  Sender: FDA-Public Use
  Company Number: US-GILEAD-2010-0031707

PATIENT
  Sex: Male
  Weight: 97.156 kg

DRUGS (17)
  1. LETAIRIS [Suspect]
     Indication: PULMONARY ARTERIAL HYPERTENSION
     Route: 048
     Dates: start: 20090723
  2. LASIX [Concomitant]
  3. ALDACTONE [Concomitant]
  4. COUMADIN [Concomitant]
  5. PREDNISONE [Concomitant]
  6. LOPRESSOR [Concomitant]
  7. COREG [Concomitant]
  8. COZAAR [Concomitant]
  9. PRAZOSIN HCL [Concomitant]
  10. POTASSIUM CHLORIDE [Concomitant]
  11. BACTRIM DS [Concomitant]
  12. PROTONIX [Concomitant]
  13. ZOFRAN [Concomitant]
  14. MECLIZINE [Concomitant]
  15. VICODIN [Concomitant]
  16. ASCORBIC ACID [Concomitant]
  17. TYLENOL [Concomitant]

REACTIONS (1)
  - CARDIAC FAILURE CONGESTIVE [None]
